FAERS Safety Report 7490568-3 (Version None)
Quarter: 2011Q2

REPORT INFORMATION
  Report Type: 
  Country: None (occurrence: None)
  Receive Date: 20110519
  Receipt Date: 20110511
  Transmission Date: 20111010
  Serious: Yes (Other)
  Sender: FDA-Public Use
  Company Number: GB-AMGEN-GBRSP2011025071

PATIENT
  Age: 65 Year
  Sex: Female

DRUGS (1)
  1. ENBREL [Suspect]
     Indication: PRODUCT USED FOR UNKNOWN INDICATION
     Dosage: 50 MG, UNK
     Dates: start: 20110301

REACTIONS (7)
  - INJECTION SITE ERYTHEMA [None]
  - SWELLING [None]
  - EAR PAIN [None]
  - INJECTION SITE PAIN [None]
  - INJECTION SITE WARMTH [None]
  - DRUG INEFFECTIVE [None]
  - NECK PAIN [None]
